FAERS Safety Report 15260039 (Version 1)
Quarter: 2018Q3

REPORT INFORMATION
  Report Type: Spontaneous
  Country: US (occurrence: US)
  Receive Date: 20180809
  Receipt Date: 20180809
  Transmission Date: 20181010
  Serious: No
  Sender: FDA-Public Use
  Company Number: US-MYLANLABS-2018M1060450

PATIENT

DRUGS (2)
  1. FLUVOXAMINE MALEATE. [Suspect]
     Active Substance: FLUVOXAMINE MALEATE
     Indication: PRODUCT USED FOR UNKNOWN INDICATION
     Dosage: 50 MG, UNK
     Route: 048
  2. FLUVOXAMINE MALEATE TABLETS, USP [Suspect]
     Active Substance: FLUVOXAMINE MALEATE
     Indication: PRODUCT USED FOR UNKNOWN INDICATION
     Dosage: 100 MG, UNK
     Route: 048

REACTIONS (4)
  - Dyspnoea [Unknown]
  - Anxiety [Unknown]
  - Chest discomfort [Unknown]
  - Tachyphrenia [Unknown]
